FAERS Safety Report 20606001 (Version 2)
Quarter: 2022Q2

REPORT INFORMATION
  Report Type: Spontaneous
  Country: TR (occurrence: TR)
  Receive Date: 20220317
  Receipt Date: 20220415
  Transmission Date: 20220721
  Serious: Yes (Hospitalization)
  Sender: FDA-Public Use
  Company Number: TR-SUN PHARMACEUTICAL INDUSTRIES LTD-2022R1-329547

PATIENT
  Age: 43 Year

DRUGS (4)
  1. FAVIPIRAVIR [Suspect]
     Active Substance: FAVIPIRAVIR
     Indication: COVID-19
     Dosage: 2 X 600 MG
     Route: 048
     Dates: start: 20200321, end: 20200331
  2. HYDROXYCHLOROQUINE [Suspect]
     Active Substance: HYDROXYCHLOROQUINE
     Indication: COVID-19
     Dosage: UNK
     Route: 065
  3. COLCHICINE [Concomitant]
     Active Substance: COLCHICINE
     Indication: Immunomodulatory therapy
     Dosage: 0.6 MILLIGRAM
     Route: 048
     Dates: start: 20220321
  4. COLCHICINE [Concomitant]
     Active Substance: COLCHICINE
     Indication: Antiinflammatory therapy

REACTIONS (1)
  - Disease progression [Unknown]
